FAERS Safety Report 15255816 (Version 1)
Quarter: 2018Q3

REPORT INFORMATION
  Report Type: Spontaneous
  Country: IT (occurrence: IT)
  Receive Date: 20180808
  Receipt Date: 20180808
  Transmission Date: 20181010
  Serious: Yes (Other)
  Sender: FDA-Public Use
  Company Number: IT-PFIZER INC-2018316319

PATIENT
  Age: 60 Year
  Sex: Male

DRUGS (6)
  1. TACNI [Suspect]
     Active Substance: TACROLIMUS
  2. METOPROLOLO [Concomitant]
  3. URBASON [Concomitant]
     Active Substance: METHYLPREDNISOLONE
  4. ATORVASTATIN CALCIUM. [Suspect]
     Active Substance: ATORVASTATIN CALCIUM
     Dosage: 40 MG, 1X/DAY
  5. ZYLORIC [Concomitant]
     Active Substance: ALLOPURINOL
  6. LANSOX [Concomitant]
     Active Substance: LANSOPRAZOLE

REACTIONS (1)
  - Chest discomfort [Recovering/Resolving]

NARRATIVE: CASE EVENT DATE: 20180527
